FAERS Safety Report 6146091-1 (Version None)
Quarter: 2009Q2

REPORT INFORMATION
  Report Type: 
  Country: None (occurrence: None)
  Receive Date: 20090407
  Receipt Date: 20090326
  Transmission Date: 20091009
  Serious: Yes (Other)
  Sender: FDA-Public Use
  Company Number: CN-PFIZER INC-2009184141

PATIENT

DRUGS (4)
  1. VFEND [Suspect]
     Indication: FUNGAL INFECTION
     Dosage: 200 MG, 2X/DAY
     Route: 048
     Dates: start: 20090225, end: 20090313
  2. SULPERAZON [Concomitant]
     Dosage: UNK
     Dates: start: 20090101
  3. TIENAM [Concomitant]
     Dosage: UNK
     Dates: start: 20090101
  4. AMPHOTERICIN B [Concomitant]
     Dosage: UNK
     Dates: start: 20090101

REACTIONS (8)
  - ABDOMINAL DISTENSION [None]
  - BLOOD CHLORIDE DECREASED [None]
  - BLOOD SODIUM DECREASED [None]
  - DIPLOPIA [None]
  - HYPOAESTHESIA ORAL [None]
  - NAUSEA [None]
  - RESIDUAL URINE [None]
  - VOMITING [None]
